FAERS Safety Report 10121137 (Version 1)
Quarter: 2014Q2

REPORT INFORMATION
  Report Type: Spontaneous
  Country: US (occurrence: US)
  Receive Date: 20140425
  Receipt Date: 20140425
  Transmission Date: 20141212
  Serious: No
  Sender: FDA-Public Use
  Company Number: US-ASTRAZENECA-2014SE01501

PATIENT
  Age: 28 Year
  Sex: Male

DRUGS (1)
  1. PRILOSEC OTC [Suspect]
     Route: 048
     Dates: start: 20130101, end: 20130101

REACTIONS (2)
  - Dyspepsia [Recovered/Resolved]
  - Oral discomfort [Recovered/Resolved]
